FAERS Safety Report 22261714 (Version 3)
Quarter: 2023Q4

REPORT INFORMATION
  Report Type: Report from Study
  Country: BE (occurrence: BE)
  Receive Date: 20230428
  Receipt Date: 20231211
  Transmission Date: 20240110
  Serious: Yes (Hospitalization)
  Sender: FDA-Public Use
  Company Number: BE-ABBVIE-4744536

PATIENT
  Age: 77 Year
  Sex: Female
  Weight: 73 kg

DRUGS (6)
  1. CARBIDOPA\LEVODOPA [Suspect]
     Active Substance: CARBIDOPA\LEVODOPA
     Indication: Parkinson^s disease
     Route: 050
     Dates: start: 20140812
  2. CARBIDOPA\LEVODOPA [Suspect]
     Active Substance: CARBIDOPA\LEVODOPA
     Dosage: MD: 5.0 ML, CD: 2.6 ML/H, ED: 1.6 ML DURING 16 HOURS
     Route: 050
     Dates: start: 20220825, end: 20230110
  3. CARBIDOPA\LEVODOPA [Suspect]
     Active Substance: CARBIDOPA\LEVODOPA
     Dosage: MD: 5.0 ML, CD: 2.3 ML/H, ED: 1.6 ML DURING 16 HOURS?LAST ADMIN DATE 2023
     Route: 050
     Dates: start: 20230110
  4. CARBIDOPA\LEVODOPA [Suspect]
     Active Substance: CARBIDOPA\LEVODOPA
     Dosage: MD: 5.0 ML, CD: 2.5 ML/H, ED: 1.6 ML DURING 16 HOURS
     Route: 050
     Dates: start: 20220817, end: 20220825
  5. CARBIDOPA\LEVODOPA [Suspect]
     Active Substance: CARBIDOPA\LEVODOPA
     Route: 050
     Dates: start: 2023
  6. BENSERAZIDE\LEVODOPA [Concomitant]
     Active Substance: BENSERAZIDE\LEVODOPA
     Indication: Product used for unknown indication
     Dosage: FORM STRENGTH: 125
     Route: 050

REACTIONS (4)
  - Femur fracture [Unknown]
  - Cognitive disorder [Not Recovered/Not Resolved]
  - Off label use [Not Recovered/Not Resolved]
  - Restlessness [Not Recovered/Not Resolved]

NARRATIVE: CASE EVENT DATE: 20230101
